FAERS Safety Report 23429597 (Version 1)
Quarter: 2024Q1

REPORT INFORMATION
  Report Type: Spontaneous
  Country: US (occurrence: US)
  Receive Date: 20240122
  Receipt Date: 20240122
  Transmission Date: 20240409
  Serious: Yes (Other)
  Sender: FDA-Public Use
  Company Number: US-PFIZER INC-202400018529

PATIENT
  Age: 59 Year
  Sex: Male

DRUGS (1)
  1. IBRANCE [Suspect]
     Active Substance: PALBOCICLIB
     Dosage: ON DAYS 1 THROUGH 21 OF EACH 28 DAY CYCLE

REACTIONS (1)
  - Nerve injury [Recovering/Resolving]
